FAERS Safety Report 9324757 (Version 1)
Quarter: 2013Q2

REPORT INFORMATION
  Report Type: Spontaneous
  Country: US (occurrence: US)
  Receive Date: 20130603
  Receipt Date: 20130603
  Transmission Date: 20140414
  Serious: No
  Sender: FDA-Public Use
  Company Number: US-PFIZER INC-2013165313

PATIENT
  Sex: 0

DRUGS (3)
  1. ENBREL [Suspect]
     Dosage: UNK
     Route: 065
  2. METHOTREXATE SODIUM [Suspect]
     Dosage: UNK
     Route: 065
  3. HUMIRA [Suspect]
     Dosage: UNK
     Route: 065

REACTIONS (2)
  - Malaise [Unknown]
  - Drug ineffective [Unknown]
